FAERS Safety Report 10922782 (Version 2)
Quarter: 2015Q2

REPORT INFORMATION
  Report Type: Spontaneous
  Country: US (occurrence: US)
  Receive Date: 20150317
  Receipt Date: 20150521
  Transmission Date: 20150821
  Serious: Yes (Hospitalization, Other)
  Sender: FDA-Public Use
  Company Number: US-GLAXOSMITHKLINE-US2015GSK034584

PATIENT
  Sex: Male

DRUGS (9)
  1. CITRACAL [Concomitant]
     Active Substance: CALCIUM CITRATE
  2. TAFINLAR [Suspect]
     Active Substance: DABRAFENIB MESYLATE
     Indication: MALIGNANT MELANOMA
     Dosage: 150 MG, BID
     Route: 048
     Dates: start: 20140707
  3. HYDROCORTISONE. [Concomitant]
     Active Substance: HYDROCORTISONE
  4. TYLENOL [Concomitant]
     Active Substance: ACETAMINOPHEN
  5. SYNTHROID [Concomitant]
     Active Substance: LEVOTHYROXINE SODIUM
  6. MEKINIST [Suspect]
     Active Substance: TRAMETINIB DIMETHYL SULFOXIDE
     Indication: MALIGNANT MELANOMA
     Dosage: 2 MG, QD
     Route: 048
     Dates: start: 20140707
  7. FINASTERIDE. [Concomitant]
     Active Substance: FINASTERIDE
  8. TESTOSTERONE. [Concomitant]
     Active Substance: TESTOSTERONE
  9. TAMSULOSIN [Concomitant]
     Active Substance: TAMSULOSIN

REACTIONS (2)
  - Adrenal insufficiency [Unknown]
  - Hospitalisation [Unknown]
